FAERS Safety Report 13836324 (Version 4)
Quarter: 2019Q3

REPORT INFORMATION
  Report Type: Report from Study
  Country: BR (occurrence: BR)
  Receive Date: 20170804
  Receipt Date: 20190704
  Transmission Date: 20191004
  Serious: Yes (Hospitalization, Other)
  Sender: FDA-Public Use
  Company Number: PHHY2017BR113598

PATIENT
  Age: 38 Year
  Sex: Male
  Weight: 100 kg

DRUGS (6)
  1. COSENTYX [Suspect]
     Active Substance: SECUKINUMAB
     Dosage: UNK
     Route: 065
     Dates: start: 20161025
  2. COSENTYX [Suspect]
     Active Substance: SECUKINUMAB
     Dosage: UNK
     Route: 065
     Dates: start: 20190507
  3. COSENTYX [Suspect]
     Active Substance: SECUKINUMAB
     Dosage: UNK
     Route: 065
     Dates: start: 20171114
  4. CEFADROXIL. [Concomitant]
     Active Substance: CEFADROXIL
     Indication: PRODUCT USED FOR UNKNOWN INDICATION
     Route: 065
  5. COSENTYX [Suspect]
     Active Substance: SECUKINUMAB
     Indication: PSORIASIS
     Dosage: 300 MG (2 PENS), QMO
     Route: 058
     Dates: start: 2016
  6. GLUCOSE [Concomitant]
     Active Substance: DEXTROSE
     Indication: PRODUCT USED FOR UNKNOWN INDICATION
     Route: 065

REACTIONS (20)
  - Abdominal pain [Recovering/Resolving]
  - Diphtheria [Unknown]
  - Joint lock [Unknown]
  - Spondylitis [Recovering/Resolving]
  - Skin wound [Recovering/Resolving]
  - Affect lability [Unknown]
  - Skin exfoliation [Recovering/Resolving]
  - Skin lesion [Recovering/Resolving]
  - Hernia [Unknown]
  - Dysentery [Unknown]
  - Pain [Unknown]
  - Psoriasis [Recovering/Resolving]
  - Osteoarthritis [Recovering/Resolving]
  - Injection site discolouration [Recovering/Resolving]
  - Scab [Unknown]
  - Skin discolouration [Recovering/Resolving]
  - Spinal disorder [Unknown]
  - Gait disturbance [Unknown]
  - Abdominal discomfort [Unknown]
  - Blood disorder [Unknown]

NARRATIVE: CASE EVENT DATE: 201904
